FAERS Safety Report 9011306 (Version 1)
Quarter: 2013Q1

REPORT INFORMATION
  Report Type: Spontaneous
  Country: US (occurrence: US)
  Receive Date: 20130109
  Receipt Date: 20130109
  Transmission Date: 20140127
  Serious: Yes (Death, Hospitalization)
  Sender: FDA-Public Use
  Company Number: US-PFIZER INC-2013006265

PATIENT
  Age: 40 Year
  Sex: Male
  Weight: 65 kg

DRUGS (3)
  1. GABAPENTIN [Suspect]
     Dosage: UNK
     Route: 048
  2. AMITRIPTYLINE [Suspect]
  3. COCAINE [Suspect]

REACTIONS (3)
  - Completed suicide [Fatal]
  - Cardiac arrest [Fatal]
  - Respiratory arrest [Fatal]
